FAERS Safety Report 16289533 (Version 1)
Quarter: 2019Q2

REPORT INFORMATION
  Report Type: Spontaneous
  Country: ES (occurrence: ES)
  Receive Date: 20190509
  Receipt Date: 20190509
  Transmission Date: 20190711
  Serious: Yes (Other)
  Sender: FDA-Public Use
  Company Number: ES-ACCORD-126631

PATIENT
  Age: 82 Year
  Sex: Male

DRUGS (9)
  1. PREVENCOR [Concomitant]
     Active Substance: ATORVASTATIN CALCIUM
     Dosage: STRENGTH 10 MG,28 TABLETS
  2. BELMAZOL [Concomitant]
     Dosage: STRENGTH 20 MG, 28 CAPSULES
  3. SOLIFENACIN/SOLIFENACIN SUCCINATE [Concomitant]
  4. PARACETAMOL [Concomitant]
     Active Substance: ACETAMINOPHEN
  5. AMLODIPINE [Suspect]
     Active Substance: AMLODIPINE BESYLATE
     Indication: HYPERTENSION
     Dosage: STRENGTH 5 MG
     Route: 048
     Dates: start: 20170510, end: 20181205
  6. BROMAZEPAM [Concomitant]
     Active Substance: BROMAZEPAM
  7. EPINASTINE. [Concomitant]
     Active Substance: EPINASTINE HYDROCHLORIDE
  8. FLUTICASONE. [Concomitant]
     Active Substance: FLUTICASONE
  9. EBASTEL FORTE FLAS [Concomitant]
     Active Substance: EBASTINE
     Dosage: 20 MG LYOPHILIZED ORAL, 20 LYOPHILIZED

REACTIONS (1)
  - Lichenoid keratosis [Recovered/Resolved]

NARRATIVE: CASE EVENT DATE: 20181030
